FAERS Safety Report 6681390-6 (Version None)
Quarter: 2010Q2

REPORT INFORMATION
  Report Type: 
  Country: None (occurrence: None)
  Receive Date: 20100414
  Receipt Date: 20100407
  Transmission Date: 20101027
  Serious: Yes (Life-Threatening, Hospitalization)
  Sender: FDA-Public Use
  Company Number: B0611403A

PATIENT
  Sex: Female
  Weight: 54 kg

DRUGS (5)
  1. ARIXTRA [Suspect]
     Indication: ERYSIPELAS
     Dosage: 7.5MG PER DAY
     Route: 058
     Dates: start: 20090822, end: 20090901
  2. LODOZ [Concomitant]
     Dosage: 5MG PER DAY
     Route: 065
     Dates: start: 20080101
  3. TAREG [Concomitant]
     Dosage: 80MG PER DAY
     Route: 065
     Dates: start: 20080101
  4. PARACETAMOL [Concomitant]
     Indication: ANALGESIC THERAPY
     Route: 065
  5. PYOSTACINE [Concomitant]
     Indication: ERYSIPELAS
     Dosage: 1000MG THREE TIMES PER DAY
     Route: 048
     Dates: start: 20090822

REACTIONS (21)
  - ABDOMINAL PAIN [None]
  - ABDOMINAL PAIN UPPER [None]
  - BLADDER INJURY [None]
  - CARDIAC ARREST [None]
  - FAECES DISCOLOURED [None]
  - FEEDING DISORDER [None]
  - GASTRIC HAEMORRHAGE [None]
  - GENERAL PHYSICAL HEALTH DETERIORATION [None]
  - HAEMODYNAMIC INSTABILITY [None]
  - HAEMOGLOBIN DECREASED [None]
  - HYDRONEPHROSIS [None]
  - HYPOTENSION [None]
  - INTESTINAL ISCHAEMIA [None]
  - INTRA-ABDOMINAL HAEMATOMA [None]
  - OLIGURIA [None]
  - PALLOR [None]
  - RENAL FAILURE [None]
  - SEPSIS [None]
  - SHOCK HAEMORRHAGIC [None]
  - URETERIC OBSTRUCTION [None]
  - VOMITING [None]
